FAERS Safety Report 20335984 (Version 2)
Quarter: 2022Q1

REPORT INFORMATION
  Report Type: Spontaneous
  Country: NL (occurrence: NL)
  Receive Date: 20220114
  Receipt Date: 20220304
  Transmission Date: 20220423
  Serious: Yes (Life-Threatening, Hospitalization, Disabling, Other)
  Sender: FDA-Public Use
  Company Number: NL-Accord-238122

PATIENT
  Age: 67 Year
  Sex: Male
  Weight: 98.1 kg

DRUGS (20)
  1. CARBOPLATIN [Suspect]
     Active Substance: CARBOPLATIN
     Dosage: 5 AUC, 1Q3W;
     Route: 042
     Dates: start: 20210803, end: 20210803
  2. DEXAMETHASONE [Suspect]
     Active Substance: DEXAMETHASONE
     Dosage: 40 MILLIGRAM DAILY;
     Dates: start: 20210802, end: 20210805
  3. CYTARABINE [Suspect]
     Active Substance: CYTARABINE
     Dosage: 1Q3W; UNIT DOSE: 2000 MG/M2
     Route: 042
     Dates: start: 20210803, end: 20210803
  4. CYTARABINE [Suspect]
     Active Substance: CYTARABINE
     Dosage: 1Q3W, 2000 MG/M2
     Route: 042
     Dates: start: 20210803, end: 20210804
  5. EPCORITAMAB [Suspect]
     Active Substance: EPCORITAMAB
     Dosage: PRIMING DOSE: 0.16 MILLIGRAM, SINGLE
     Route: 058
     Dates: start: 20210802, end: 20210802
  6. EPCORITAMAB [Suspect]
     Active Substance: EPCORITAMAB
     Dosage: PRIMING DOSE: 0.8 MILLIGRAM, SINGLE
     Route: 058
     Dates: start: 20210809, end: 20210809
  7. RITUXIMAB [Suspect]
     Active Substance: RITUXIMAB
     Dosage: 1Q3W; UNIT DOSE: 375MG/M2
     Route: 042
     Dates: start: 20210802, end: 20210802
  8. HYPROMELLOSE PHTHALATE [Concomitant]
     Active Substance: HYPROMELLOSE PHTHALATE
     Dates: start: 20210803, end: 20210805
  9. MAGNESIUM SULFATE [Concomitant]
     Active Substance: MAGNESIUM SULFATE
     Dates: start: 20210802, end: 20210804
  10. RASBURICASE [Concomitant]
     Active Substance: RASBURICASE
     Dates: start: 20210802, end: 20210804
  11. ACETAMINOPHEN [Concomitant]
     Active Substance: ACETAMINOPHEN
     Dates: start: 20210809, end: 20210809
  12. ACETAMINOPHEN [Concomitant]
     Active Substance: ACETAMINOPHEN
     Dates: start: 20210802, end: 20210809
  13. ONDANSETRON [Concomitant]
     Active Substance: ONDANSETRON
     Dates: start: 20210802, end: 20210805
  14. PREDNISOLONE [Concomitant]
     Active Substance: PREDNISOLONE
     Dosage: 25 MG
     Route: 042
     Dates: start: 20210802, end: 20210819
  15. PREDNISOLONE [Concomitant]
     Active Substance: PREDNISOLONE
     Dosage: 100 MG
     Route: 048
     Dates: start: 20210809
  16. PREDNISOLONE [Concomitant]
     Active Substance: PREDNISOLONE
     Dosage: 25 MG
     Route: 042
     Dates: start: 20210810, end: 20210812
  17. PREDNISOLONE [Concomitant]
     Active Substance: PREDNISOLONE
     Dosage: 25 MG
     Route: 042
     Dates: start: 20190816, end: 20190819
  18. DEXAMETHASONE [Concomitant]
     Active Substance: DEXAMETHASONE
     Dates: start: 20210802, end: 20210805
  19. CLEMASTINE [Concomitant]
     Active Substance: CLEMASTINE
     Dates: start: 20210802, end: 20210809
  20. CLEMASTINE [Concomitant]
     Active Substance: CLEMASTINE
     Dates: start: 20210809, end: 20210809

REACTIONS (2)
  - Guillain-Barre syndrome [Recovering/Resolving]
  - Respiratory failure [Unknown]

NARRATIVE: CASE EVENT DATE: 20210810
